FAERS Safety Report 20947727 (Version 1)
Quarter: 2022Q2

REPORT INFORMATION
  Report Type: Spontaneous
  Country: NL (occurrence: None)
  Receive Date: 20220611
  Receipt Date: 20220611
  Transmission Date: 20220721
  Serious: Yes (Life-Threatening)
  Sender: FDA-Public Use
  Company Number: None

PATIENT
  Age: 91 Year
  Sex: Female
  Weight: 69 kg

DRUGS (3)
  1. AVASTIN [Suspect]
     Active Substance: BEVACIZUMAB
     Indication: Retinal vein thrombosis
     Dosage: 2.75 MG
     Route: 065
     Dates: start: 20220503, end: 20220521
  2. FLUOXETINE [Concomitant]
     Active Substance: FLUOXETINE HYDROCHLORIDE
     Dosage: CAPSULE, 20 MG (MILLIGRAM)
  3. BUDESONIDE [Concomitant]
     Active Substance: BUDESONIDE
     Dosage: CAPSULE MET GEREGULEERDE AFGIFTE, 3 MG (MILLIGRAM)

REACTIONS (2)
  - Reversible cerebral vasoconstriction syndrome [Recovered/Resolved]
  - Hypertension [Recovered/Resolved]

NARRATIVE: CASE EVENT DATE: 20220520
